FAERS Safety Report 8226525-9 (Version None)
Quarter: 2012Q1

REPORT INFORMATION
  Report Type: 
  Country: None (occurrence: None)
  Receive Date: 20120322
  Receipt Date: 20120312
  Transmission Date: 20120608
  Serious: Yes (Hospitalization)
  Sender: FDA-Public Use
  Company Number: US-BIOGENIDEC-2011BI017129

PATIENT
  Sex: Male

DRUGS (1)
  1. AVONEX [Suspect]
     Indication: MULTIPLE SCLEROSIS
     Route: 030
     Dates: start: 20110121

REACTIONS (6)
  - URINARY TRACT INFECTION [None]
  - INGUINAL HERNIA, OBSTRUCTIVE [None]
  - SPLENECTOMY [None]
  - PYREXIA [None]
  - ULCER [None]
  - PNEUMONIA [None]
